FAERS Safety Report 14877613 (Version 1)
Quarter: 2018Q2

REPORT INFORMATION
  Report Type: Report from Study
  Country: None (occurrence: US)
  Receive Date: 20180510
  Receipt Date: 20180510
  Transmission Date: 20180711
  Serious: Yes (Other)
  Sender: FDA-Public Use
  Company Number: US-BAUSCH-BL-2018-013419

PATIENT
  Sex: Female

DRUGS (1)
  1. MESTINON [Suspect]
     Active Substance: PYRIDOSTIGMINE BROMIDE
     Indication: PRODUCT USED FOR UNKNOWN INDICATION
     Route: 048
     Dates: start: 20171002

REACTIONS (4)
  - Impaired healing [Recovered/Resolved]
  - Malaise [Unknown]
  - Limb injury [Recovered/Resolved]
  - Accident [Unknown]
